FAERS Safety Report 9386723 (Version 1)
Quarter: 2013Q3

REPORT INFORMATION
  Report Type: Spontaneous
  Country: CN (occurrence: None)
  Receive Date: 20130702
  Receipt Date: 20130702
  Transmission Date: 20140515
  Serious: Yes (Other)
  Sender: FDA-Public Use
  Company Number: VAL_02600_2013

PATIENT
  Age: 75 Year
  Sex: Female

DRUGS (6)
  1. ROCALTROL [Suspect]
     Indication: RENAL TRANSPLANT
     Route: 048
  2. CELLCEPT [Suspect]
     Indication: RENAL TRANSPLANT
     Route: 048
     Dates: start: 20011128
  3. SIROLIMUS [Suspect]
     Indication: RENAL TRANSPLANT
     Dosage: IMPORT RAPAMUNE, ORAL
     Route: 048
     Dates: start: 200712, end: 200712
  4. METHYLPREDNISOLONE [Suspect]
     Indication: RENAL TRANSPLANT
     Route: 048
     Dates: start: 20111128
  5. CICLOSPORIN A [Concomitant]
  6. LONG DAN XIE GAN (TRADITIOINAL CHINESE DRUG) [Concomitant]

REACTIONS (4)
  - Gait disturbance [None]
  - Ureteric cancer [None]
  - White blood cell count decreased [None]
  - Hyperlipidaemia [None]
